FAERS Safety Report 13394287 (Version 1)
Quarter: 2017Q2

REPORT INFORMATION
  Report Type: Spontaneous
  Country: GB (occurrence: GB)
  Receive Date: 20170402
  Receipt Date: 20170402
  Transmission Date: 20170830
  Serious: Yes (Other)
  Sender: FDA-Public Use
  Company Number: GB-MYLANLABS-2017M1019470

PATIENT

DRUGS (1)
  1. FINASTERIDE. [Suspect]
     Active Substance: FINASTERIDE
     Indication: ALOPECIA
     Dosage: 1 MG, UNK
     Dates: start: 201604, end: 2016

REACTIONS (5)
  - Abnormal weight gain [Not Recovered/Not Resolved]
  - Feeling abnormal [Not Recovered/Not Resolved]
  - Suicidal ideation [Not Recovered/Not Resolved]
  - Penile size reduced [Not Recovered/Not Resolved]
  - Depression [Not Recovered/Not Resolved]

NARRATIVE: CASE EVENT DATE: 2016
